FAERS Safety Report 18490797 (Version 1)
Quarter: 2020Q4

REPORT INFORMATION
  Report Type: Report from Study
  Country: US (occurrence: US)
  Receive Date: 20201111
  Receipt Date: 20201111
  Transmission Date: 20210114
  Serious: Yes (Death)
  Sender: FDA-Public Use
  Company Number: US-ASTRAZENECA-2020SF46895

PATIENT
  Age: 67 Year
  Sex: Male
  Weight: 72.6 kg

DRUGS (1)
  1. TAGRISSO [Suspect]
     Active Substance: OSIMERTINIB
     Indication: LUNG CANCER METASTATIC
     Route: 048
     Dates: start: 202007, end: 2020

REACTIONS (10)
  - Death [Fatal]
  - Diarrhoea [Fatal]
  - Respiratory failure [Fatal]
  - Feeding disorder [Fatal]
  - Asthenia [Fatal]
  - Lung disorder [Fatal]
  - Fatigue [Fatal]
  - Emphysema [Fatal]
  - Weight decreased [Fatal]
  - Illness [Unknown]

NARRATIVE: CASE EVENT DATE: 2020
